FAERS Safety Report 25208706 (Version 2)
Quarter: 2025Q3

REPORT INFORMATION
  Report Type: Spontaneous
  Country: JP (occurrence: JP)
  Receive Date: 20250417
  Receipt Date: 20250710
  Transmission Date: 20251020
  Serious: Yes (Death, Life-Threatening, Other)
  Sender: BRISTOL-MYERS SQUIBB COMPANY
  Company Number: JP-ONO-2025JP006328

PATIENT
  Age: 75 Year
  Sex: Male
  Weight: 63.7 kg

DRUGS (18)
  1. OPDIVO [Suspect]
     Active Substance: NIVOLUMAB
     Indication: Squamous cell carcinoma of lung
     Route: 041
     Dates: start: 20240516, end: 20240516
  2. PIPERACILLIN SODIUM\TAZOBACTAM SODIUM [Suspect]
     Active Substance: PIPERACILLIN SODIUM\TAZOBACTAM SODIUM
     Indication: Infectious pleural effusion
     Dosage: 0.5 G, Q6H
     Route: 042
     Dates: start: 20240523, end: 20240617
  3. PIPERACILLIN SODIUM\TAZOBACTAM SODIUM [Suspect]
     Active Substance: PIPERACILLIN SODIUM\TAZOBACTAM SODIUM
     Route: 042
     Dates: start: 20240624, end: 20240701
  4. NAPROXEN [Suspect]
     Active Substance: NAPROXEN
     Indication: Pyrexia
     Dosage: 1 DF, Q8H
     Route: 048
     Dates: start: 20240530, end: 20240601
  5. NAPROXEN [Suspect]
     Active Substance: NAPROXEN
     Route: 048
     Dates: start: 20240604, end: 20240606
  6. NAPROXEN [Suspect]
     Active Substance: NAPROXEN
     Route: 048
     Dates: start: 20240619, end: 20240622
  7. DICLOFENAC SODIUM [Suspect]
     Active Substance: DICLOFENAC SODIUM
     Indication: Cancer pain
     Route: 062
     Dates: start: 20240531, end: 20240601
  8. CARBOPLATIN [Concomitant]
     Active Substance: CARBOPLATIN
     Indication: Squamous cell carcinoma of lung
     Dates: start: 20240516
  9. PACLITAXEL [Concomitant]
     Active Substance: PACLITAXEL
     Indication: Squamous cell carcinoma of lung
     Dates: start: 20240516
  10. PREDONINE [Concomitant]
     Active Substance: PREDNISOLONE
     Indication: Product used for unknown indication
     Route: 048
  11. FENTANYL [Concomitant]
     Active Substance: FENTANYL
     Indication: Product used for unknown indication
     Route: 062
  12. LULICONAZOLE [Concomitant]
     Active Substance: LULICONAZOLE
     Indication: Product used for unknown indication
     Route: 061
  13. HEPARINOID [Concomitant]
     Indication: Product used for unknown indication
     Route: 061
  14. MIDAZOLAM [Concomitant]
     Active Substance: MIDAZOLAM
     Indication: Product used for unknown indication
  15. ISOTONIC SODIUM CHLORIDE SOLUTION [Concomitant]
     Active Substance: SODIUM CHLORIDE
     Indication: Product used for unknown indication
  16. AMINO ACIDS\DEXTROSE\ELECTROLYTES NOS\MINERALS\VITAMINS [Concomitant]
     Active Substance: AMINO ACIDS\DEXTROSE\ELECTROLYTES NOS\MINERALS\VITAMINS
     Indication: Product used for unknown indication
  17. POLARAMINE [Concomitant]
     Active Substance: DEXCHLORPHENIRAMINE MALEATE
     Indication: Product used for unknown indication
  18. FAMOTIDINE [Concomitant]
     Active Substance: FAMOTIDINE
     Indication: Product used for unknown indication

REACTIONS (1)
  - Toxic epidermal necrolysis [Fatal]

NARRATIVE: CASE EVENT DATE: 20240601
